FAERS Safety Report 15732943 (Version 2)
Quarter: 2018Q4

REPORT INFORMATION
  Report Type: Spontaneous
  Country: AT (occurrence: AT)
  Receive Date: 20181218
  Receipt Date: 20181223
  Transmission Date: 20190205
  Serious: Yes (Death, Hospitalization)
  Sender: FDA-Public Use
  Company Number: AT-B.I. PHARMACEUTICALS,INC./RIDGEFIELD-2018-BI-059666

PATIENT
  Age: 55 Year
  Sex: Female

DRUGS (1)
  1. PRADAXA [Suspect]
     Active Substance: DABIGATRAN ETEXILATE MESYLATE
     Indication: ATRIAL FIBRILLATION
     Route: 065

REACTIONS (6)
  - Aphasia [Not Recovered/Not Resolved]
  - Injury [Unknown]
  - Cerebral haemorrhage [Fatal]
  - Spinal cord haematoma [Fatal]
  - Hemiparesis [Unknown]
  - Spinal cord haemorrhage [Unknown]
